FAERS Safety Report 10006176 (Version 2)
Quarter: 2014Q1

REPORT INFORMATION
  Report Type: Spontaneous
  Country: JP (occurrence: JP)
  Receive Date: 20140313
  Receipt Date: 20140313
  Transmission Date: 20141002
  Serious: Yes (Life-Threatening, Other)
  Sender: FDA-Public Use
  Company Number: JP-ASTELLAS-2014JP001570

PATIENT
  Age: 81 Year
  Sex: Male
  Weight: 59 kg

DRUGS (9)
  1. VESICARE [Suspect]
     Indication: NOCTURIA
     Dosage: 10 MG, UID/QD
     Route: 048
     Dates: end: 20140219
  2. ARICEPT [Interacting]
     Indication: DEMENTIA
     Dosage: 5 MG, UID/QD
     Route: 048
     Dates: end: 20140219
  3. PRANLUKAST [Concomitant]
     Indication: CHRONIC OBSTRUCTIVE PULMONARY DISEASE
     Dosage: 225 MG, BID
     Route: 048
     Dates: end: 20140219
  4. URSO                               /00465701/ [Concomitant]
     Indication: HEPATIC FUNCTION ABNORMAL
     Dosage: 100 MG, TID
     Route: 048
     Dates: end: 20140219
  5. PROMAC                             /01312301/ [Concomitant]
     Indication: GASTRIC ULCER
     Dosage: 75 MG, BID
     Route: 048
     Dates: end: 20140219
  6. LIVACT                             /00847901/ [Concomitant]
     Indication: HEPATIC FUNCTION ABNORMAL
     Dosage: 4.15 G, TID
     Route: 048
     Dates: end: 20140219
  7. BAYASPIRIN [Concomitant]
     Indication: ANGINA PECTORIS
     Dosage: 100 MG, UID/QD
     Route: 048
  8. PARIET [Concomitant]
     Indication: GASTRIC ULCER
     Dosage: 10 MG, UID/QD
     Route: 048
     Dates: end: 20140219
  9. MAGMITT [Concomitant]
     Indication: CONSTIPATION
     Dosage: 330 MG, TID
     Route: 048
     Dates: end: 20140219

REACTIONS (3)
  - Drug interaction [Unknown]
  - Ventricular tachycardia [Recovering/Resolving]
  - Electrocardiogram QT prolonged [Unknown]
